FAERS Safety Report 7574392-9 (Version None)
Quarter: 2011Q2

REPORT INFORMATION
  Report Type: 
  Country: None (occurrence: None)
  Receive Date: 20110627
  Receipt Date: 20110128
  Transmission Date: 20111010
  Serious: Yes (Death, Hospitalization, Other)
  Sender: FDA-Public Use
  Company Number: US-BAYER-201037711NA

PATIENT
  Age: 53 Year
  Sex: Female
  Weight: 88.889 kg

DRUGS (17)
  1. ZYRTEC [Concomitant]
  2. CELEBREX [Concomitant]
  3. DIGOXIN [Concomitant]
  4. PACERONE [Concomitant]
  5. YASMIN [Suspect]
     Indication: ACNE
     Dosage: UNK
     Dates: start: 20000101, end: 20010101
  6. ZAROXOLYN [Concomitant]
  7. LEVOXYL [Concomitant]
  8. DARVOCET-N 50 [Concomitant]
  9. SOTATOL [Concomitant]
  10. KLOR-CON [Concomitant]
     Dosage: UNK
     Dates: start: 20010101
  11. COZAAR [Concomitant]
  12. CALCIUM CARBONATE [Concomitant]
     Dosage: UNK
     Dates: start: 20010101
  13. NASONEX [Concomitant]
  14. NORVASC [Concomitant]
  15. PROTONIX [Concomitant]
  16. LEVOTHYROXINE SODIUM [Concomitant]
  17. NEXIUM [Concomitant]
     Indication: GASTROOESOPHAGEAL REFLUX DISEASE
     Dosage: UNK
     Dates: start: 20000101

REACTIONS (4)
  - PULMONARY EMBOLISM [None]
  - PAIN [None]
  - CARDIAC DISORDER [None]
  - DYSPNOEA [None]
